FAERS Safety Report 6155227-8 (Version None)
Quarter: 2009Q2

REPORT INFORMATION
  Report Type: 
  Country: None (occurrence: None)
  Receive Date: 20090415
  Receipt Date: 20071120
  Transmission Date: 20091009
  Serious: Yes (Death, Hospitalization, Other)
  Sender: FDA-Public Use
  Company Number: US-ASTRAZENECA-2007UW09472

PATIENT
  Age: 30889 Day
  Sex: Male

DRUGS (26)
  1. SEROQUEL [Suspect]
     Indication: SLEEP DISORDER
     Route: 048
  2. SEROQUEL [Suspect]
     Dosage: 12.5-25 MG
     Route: 048
     Dates: start: 20020903
  3. SEROQUEL [Suspect]
     Route: 048
     Dates: start: 20020913
  4. SEROQUEL [Suspect]
     Dosage: 12.5 MG,EVERY MORNING, EVERY NIGHT
     Route: 048
     Dates: start: 20020912
  5. SEROQUEL [Suspect]
     Dosage: 25 MG, EVERY MORNING
     Route: 048
     Dates: start: 20020917
  6. FLOMAX [Concomitant]
  7. DITROPAN [Concomitant]
  8. ARICEPT [Concomitant]
  9. LOPRESSOR [Concomitant]
  10. ZOLOFT [Concomitant]
  11. EFFEXOR XR [Concomitant]
  12. ATIVAN [Concomitant]
  13. HYTRIN [Concomitant]
  14. RISPERDAL [Concomitant]
  15. PROTONIX [Concomitant]
  16. LEVOFLOXACIN [Concomitant]
  17. LEVSIN [Concomitant]
  18. FUROSEMIDE [Concomitant]
  19. FINASTERIDE [Concomitant]
  20. DOCUSATE [Concomitant]
  21. FEVERALL [Concomitant]
  22. POTASSIUM CHLORIDE [Concomitant]
  23. VANCOMYCIN HCL [Concomitant]
  24. PREVACID [Concomitant]
  25. SOLU-MEDROL [Concomitant]
  26. CEFEPIME [Concomitant]

REACTIONS (13)
  - AGITATION [None]
  - ANXIETY DISORDER DUE TO A GENERAL MEDICAL CONDITION [None]
  - BENIGN PROSTATIC HYPERPLASIA [None]
  - DEATH [None]
  - DECREASED INTEREST [None]
  - DEHYDRATION [None]
  - DELUSION [None]
  - DEMENTIA ALZHEIMER'S TYPE [None]
  - DISTURBANCE IN ATTENTION [None]
  - FATIGUE [None]
  - ORTHOSTATIC HYPOTENSION [None]
  - SUICIDAL IDEATION [None]
  - TYPE 2 DIABETES MELLITUS [None]
